FAERS Safety Report 16783607 (Version 1)
Quarter: 2019Q3

REPORT INFORMATION
  Report Type: Spontaneous
  Country: PL (occurrence: PL)
  Receive Date: 20190908
  Receipt Date: 20190908
  Transmission Date: 20191005
  Serious: Yes (Hospitalization)
  Sender: FDA-Public Use
  Company Number: PL-JNJFOC-20190834126

PATIENT
  Age: 38 Year
  Sex: Female
  Weight: 61 kg

DRUGS (6)
  1. NEORELIUM [Suspect]
     Active Substance: DIAZEPAM
     Indication: PROCEDURAL PAIN
     Dosage: 1 TIME A DAY - EVENING TIME
     Route: 048
     Dates: start: 20160408, end: 20160409
  2. PARACETAMOL [Suspect]
     Active Substance: ACETAMINOPHEN
     Indication: INSOMNIA
     Route: 048
     Dates: start: 20160409, end: 20160409
  3. PARACETAMOL [Suspect]
     Active Substance: ACETAMINOPHEN
     Indication: PROCEDURAL PAIN
     Route: 042
     Dates: start: 20160407, end: 20160407
  4. PALEXIA [Suspect]
     Active Substance: TAPENTADOL HYDROCHLORIDE
     Indication: PROCEDURAL PAIN
     Route: 048
     Dates: start: 20160408, end: 20160409
  5. KETONAL                            /00321701/ [Suspect]
     Active Substance: KETOPROFEN
     Indication: PROCEDURAL PAIN
     Route: 030
     Dates: start: 20160407, end: 20160410
  6. PYRALGIN                           /06276704/ [Suspect]
     Active Substance: METAMIZOLE SODIUM
     Indication: PROCEDURAL PAIN
     Route: 042
     Dates: start: 20160407, end: 20160408

REACTIONS (7)
  - Body temperature [Recovered/Resolved]
  - Diarrhoea [Recovered/Resolved]
  - Fatigue [Recovered/Resolved]
  - Nausea [Recovered/Resolved]
  - Sleep disorder [Recovered/Resolved]
  - Mucosal disorder [Recovered/Resolved]
  - Sedation [Recovered/Resolved]

NARRATIVE: CASE EVENT DATE: 20160408
